FAERS Safety Report 8932408 (Version 2)
Quarter: 2012Q4

REPORT INFORMATION
  Report Type: 
  Country: NL (occurrence: NL)
  Receive Date: 20121128
  Receipt Date: 20121224
  Transmission Date: 20130627
  Serious: Yes (Hospitalization)
  Sender: FDA-Public Use
  Company Number: PHHY2012NL108218

PATIENT
  Sex: Male
  Weight: 92 kg

DRUGS (7)
  1. ACZ885 [Suspect]
     Indication: MUCKLE-WELLS SYNDROME
     Dosage: 150 mg, every 8 weeks
     Route: 058
     Dates: start: 20110921
  2. ACZ885 [Suspect]
     Dosage: 150 mg, every 8 weeks
     Dates: start: 20120628
  3. ACZ885 [Suspect]
     Dosage: 150 mg, every 8 weeks
     Route: 058
     Dates: start: 20121004
  4. ACZ885 [Suspect]
     Dosage: 150 mg, every 8 weeks
     Route: 058
     Dates: start: 20121123
  5. INDOMETHACIN [Concomitant]
     Dosage: 75 mg, daily
     Dates: start: 2009
  6. OMEPRAZOLE [Concomitant]
     Dosage: 20 mg, daily
     Dates: start: 2009
  7. VALACICLOVIR [Concomitant]
     Indication: PROPHYLAXIS
     Dosage: 500 mg, BID
     Dates: start: 201012

REACTIONS (3)
  - Herpes virus infection [Recovered/Resolved]
  - Lip swelling [Recovered/Resolved]
  - Lip blister [Recovered/Resolved]
